FAERS Safety Report 9659619 (Version 2)
Quarter: 2013Q4

REPORT INFORMATION
  Report Type: Spontaneous
  Country: US (occurrence: US)
  Receive Date: 20131031
  Receipt Date: 20131231
  Transmission Date: 20140711
  Serious: Yes (Other)
  Sender: FDA-Public Use
  Company Number: US-JNJFOC-20131015825

PATIENT
  Age: 21 Year
  Sex: Female
  Weight: 67.13 kg

DRUGS (9)
  1. REMICADE [Suspect]
     Indication: RHEUMATOID ARTHRITIS
     Route: 042
     Dates: start: 201304
  2. REMICADE [Suspect]
     Indication: RHEUMATOID ARTHRITIS
     Route: 042
     Dates: start: 201310, end: 201310
  3. REMICADE [Suspect]
     Indication: RHEUMATOID ARTHRITIS
     Route: 042
     Dates: start: 200802
  4. REMICADE [Suspect]
     Indication: RHEUMATOID ARTHRITIS
     Route: 042
     Dates: start: 201312
  5. REMICADE [Suspect]
     Indication: IRIDOCYCLITIS
     Route: 042
     Dates: start: 201310, end: 201310
  6. REMICADE [Suspect]
     Indication: IRIDOCYCLITIS
     Route: 042
     Dates: start: 200802
  7. REMICADE [Suspect]
     Indication: IRIDOCYCLITIS
     Route: 042
     Dates: start: 201312
  8. REMICADE [Suspect]
     Indication: IRIDOCYCLITIS
     Route: 042
     Dates: start: 201304
  9. PRENATAL VITAMINS [Concomitant]
     Indication: PREGNANCY
     Route: 065
     Dates: start: 2013

REACTIONS (2)
  - Blindness [Not Recovered/Not Resolved]
  - Exposure during pregnancy [Not Recovered/Not Resolved]
